FAERS Safety Report 9732588 (Version 1)
Quarter: 2013Q4

REPORT INFORMATION
  Report Type: Spontaneous
  Country: FR (occurrence: FR)
  Receive Date: 20131205
  Receipt Date: 20131205
  Transmission Date: 20140711
  Serious: Yes (Other)
  Sender: FDA-Public Use
  Company Number: FR-JNJFOC-20131117660

PATIENT
  Age: 59 Year
  Sex: Female

DRUGS (2)
  1. XEPLION [Suspect]
     Indication: PRODUCT USED FOR UNKNOWN INDICATION
     Dosage: 100 OR 150 MG INITIATION DOSE
     Route: 030
     Dates: start: 201305
  2. XEPLION [Suspect]
     Indication: PRODUCT USED FOR UNKNOWN INDICATION
     Route: 030
     Dates: start: 20131125

REACTIONS (3)
  - Hypokinesia [Unknown]
  - Amnesia [Unknown]
  - Language disorder [Unknown]
